FAERS Safety Report 4961845-2 (Version None)
Quarter: 2006Q1

REPORT INFORMATION
  Report Type: 
  Country: None (occurrence: None)
  Receive Date: 20060329
  Receipt Date: 20060319
  Transmission Date: 20060701
  Serious: Yes (Hospitalization)
  Sender: FDA-Public Use
  Company Number: 2006037477

PATIENT
  Age: 41 Year
  Sex: Male
  Weight: 79.3795 kg

DRUGS (4)
  1. UNISOM [Suspect]
     Dosage: 20-50 CAPS ONCE, ORAL
     Route: 048
     Dates: start: 20060319, end: 20060319
  2. UNISOM [Suspect]
  3. IMIPRAMINE [Concomitant]
  4. ALFUZOSIN HYDROCHLORIDE [Concomitant]

REACTIONS (10)
  - ABNORMAL BEHAVIOUR [None]
  - AGITATION [None]
  - BLOOD PRESSURE INCREASED [None]
  - CATATONIA [None]
  - DISORIENTATION [None]
  - HALLUCINATION [None]
  - HEART RATE INCREASED [None]
  - OVERDOSE [None]
  - RESTLESSNESS [None]
  - SLEEP WALKING [None]
